FAERS Safety Report 8883487 (Version 1)
Quarter: 2012Q4

REPORT INFORMATION
  Report Type: 
  Country: US (occurrence: US)
  Receive Date: 20121102
  Receipt Date: 20121102
  Transmission Date: 20130627
  Serious: Yes (Hospitalization)
  Sender: FDA-Public Use
  Company Number: US-ASTRAZENECA-2012SE82304

PATIENT
  Sex: Male

DRUGS (1)
  1. CRESTOR [Suspect]
     Indication: BLOOD CHOLESTEROL ABNORMAL
     Route: 048
     Dates: start: 2012, end: 20121005

REACTIONS (4)
  - Abasia [Unknown]
  - Blood creatine phosphokinase increased [Recovering/Resolving]
  - Myalgia [Unknown]
  - Rhabdomyolysis [Unknown]
